FAERS Safety Report 11083518 (Version 2)
Quarter: 2015Q2

REPORT INFORMATION
  Report Type: Spontaneous
  Country: DE (occurrence: DE)
  Receive Date: 20150501
  Receipt Date: 20150616
  Transmission Date: 20150821
  Serious: Yes (Other)
  Sender: FDA-Public Use
  Company Number: DE-PFIZER INC-2015143806

PATIENT
  Age: 63 Year
  Sex: Male
  Weight: 86 kg

DRUGS (1)
  1. CAVERJECT [Suspect]
     Active Substance: ALPROSTADIL
     Indication: ERECTILE DYSFUNCTION
     Dosage: 10 ?G, UNK
     Route: 017

REACTIONS (1)
  - Penile vein thrombosis [Not Recovered/Not Resolved]

NARRATIVE: CASE EVENT DATE: 201503
